FAERS Safety Report 9214906 (Version 1)
Quarter: 2013Q2

REPORT INFORMATION
  Report Type: Spontaneous
  Country: FR (occurrence: FR)
  Receive Date: 20130405
  Receipt Date: 20130405
  Transmission Date: 20140414
  Serious: Yes (Other)
  Sender: FDA-Public Use
  Company Number: FR-009507513-1109USA00168

PATIENT
  Sex: Female

DRUGS (16)
  1. ISENTRESS [Suspect]
     Dosage: 400 MG, BID
     Route: 048
     Dates: start: 200704
  2. PREZISTA [Suspect]
     Dosage: 300 MG, BID
     Route: 048
     Dates: start: 200704
  3. DEPAKINE [Suspect]
     Dosage: 500 MG, BID
     Route: 048
     Dates: start: 2007
  4. NORVIR [Suspect]
     Dosage: 1 DF, BID
     Route: 048
     Dates: start: 200704
  5. TRUVADA [Suspect]
     Dosage: 200/245
     Route: 048
     Dates: start: 2007
  6. TRUVADA [Suspect]
     Dosage: 1 DF, UNK
     Route: 048
  7. VFEND [Suspect]
     Dosage: 200 MG, BID
     Route: 048
     Dates: start: 20060621, end: 20110211
  8. TRILEPTAL [Concomitant]
     Dosage: 450 MG, QD
     Route: 048
     Dates: start: 200611
  9. ZELITREX [Concomitant]
     Dosage: 1 DF, QD
     Dates: start: 2006
  10. RIVOTRIL [Concomitant]
     Dosage: 3/4 DF DAILY
  11. TARDYFERON [Concomitant]
     Dosage: 1 DF, QD
  12. SPECIAFOLDINE [Concomitant]
     Dosage: 0.4 L DAILY
  13. SPECIAFOLDINE [Concomitant]
     Dosage: 1 DF, QD
  14. NEULEPTIL [Concomitant]
     Dosage: UNK
  15. DITROPAN [Concomitant]
     Dosage: 2 DF, QD
  16. DITROPAN [Concomitant]
     Dosage: 2 DF, BID

REACTIONS (1)
  - Pseudoepitheliomatous hyperplasia [Not Recovered/Not Resolved]
